FAERS Safety Report 7515120-2 (Version None)
Quarter: 2011Q2

REPORT INFORMATION
  Report Type: 
  Country: None (occurrence: None)
  Receive Date: 20110601
  Receipt Date: 20110520
  Transmission Date: 20111010
  Serious: Yes (Hospitalization, Other)
  Sender: FDA-Public Use
  Company Number: US-MYLANLABS-2011S1010611

PATIENT
  Age: 26 Year
  Sex: Male

DRUGS (7)
  1. HALOPERIDOL [Suspect]
     Route: 048
     Dates: start: 20110502, end: 20110510
  2. DEPAKOTE [Concomitant]
     Indication: MOOD ALTERED
  3. DIPHENHYDRAMINE HCL [Concomitant]
     Indication: INSOMNIA
  4. HALOPERIDOL [Suspect]
     Indication: AGITATION
     Route: 048
     Dates: start: 20110329, end: 20110502
  5. LEXAPRO [Concomitant]
     Indication: MOOD ALTERED
  6. CLONIDINE [Concomitant]
     Indication: BLOOD PRESSURE INCREASED
  7. HALOPERIDOL [Suspect]
     Route: 048
     Dates: start: 20110510

REACTIONS (5)
  - RESTLESSNESS [None]
  - AGGRESSION [None]
  - ANGER [None]
  - AGITATION [None]
  - TARDIVE DYSKINESIA [None]
